FAERS Safety Report 11081879 (Version 2)
Quarter: 2015Q2

REPORT INFORMATION
  Report Type: Spontaneous
  Country: CH (occurrence: CH)
  Receive Date: 20150501
  Receipt Date: 20150505
  Transmission Date: 20150821
  Serious: Yes (Death, Hospitalization)
  Sender: FDA-Public Use
  Company Number: PHHY2015CH052005

PATIENT
  Age: 72 Year
  Sex: Male

DRUGS (1)
  1. CICLOSPORIN [Suspect]
     Active Substance: CYCLOSPORINE
     Indication: RENAL TRANSPLANT
     Dosage: 120 MG, QD
     Route: 048
     Dates: start: 20051102

REACTIONS (7)
  - Condition aggravated [Unknown]
  - Respiratory disorder [Unknown]
  - Dyspnoea [Recovered/Resolved]
  - Acute respiratory failure [Unknown]
  - Death [Fatal]
  - Dyspnoea [Recovered/Resolved with Sequelae]
  - Hypertensive cardiomyopathy [Unknown]

NARRATIVE: CASE EVENT DATE: 20090427
